FAERS Safety Report 10357795 (Version 1)
Quarter: 2014Q3

REPORT INFORMATION
  Report Type: Spontaneous
  Country: US (occurrence: None)
  Receive Date: 20140730
  Receipt Date: 20140730
  Transmission Date: 20150326
  Serious: Yes (Other)
  Sender: FDA-Public Use
  Company Number: None

PATIENT
  Age: 68 Year
  Sex: Male
  Weight: 145.15 kg

DRUGS (1)
  1. LEXISCAN [Suspect]
     Active Substance: REGADENOSON
     Indication: CARDIAC STRESS TEST
     Dosage: INTO A VEIN
     Route: 042
     Dates: start: 20140724

REACTIONS (2)
  - Feeling abnormal [None]
  - Chest pain [None]

NARRATIVE: CASE EVENT DATE: 20140729
